FAERS Safety Report 7562076-2 (Version None)
Quarter: 2011Q2

REPORT INFORMATION
  Report Type: 
  Country: None (occurrence: None)
  Receive Date: 20110622
  Receipt Date: 20091124
  Transmission Date: 20111010
  Serious: Yes (Hospitalization)
  Sender: FDA-Public Use
  Company Number: PHHY2009DE68663

PATIENT
  Sex: Female

DRUGS (1)
  1. SANDOSTATIN LAR [Suspect]
     Indication: BASEDOW'S DISEASE
     Dosage: 100 MG, BID
     Route: 058

REACTIONS (1)
  - HYPERSENSITIVITY [None]
